FAERS Safety Report 5350409-7 (Version None)
Quarter: 2007Q2

REPORT INFORMATION
  Report Type: 
  Country: None (occurrence: None)
  Receive Date: 20070605
  Receipt Date: 20070605
  Transmission Date: 20071010
  Serious: No
  Sender: FDA-Public Use
  Company Number: None

PATIENT
  Age: 31 Year
  Sex: Female
  Weight: 120.2032 kg

DRUGS (1)
  1. CELEXA [Suspect]
     Indication: DEPRESSION
     Dates: start: 20020101, end: 20070330

REACTIONS (10)
  - ANXIETY [None]
  - CONFUSIONAL STATE [None]
  - DIZZINESS [None]
  - DRUG WITHDRAWAL SYNDROME [None]
  - FEELING ABNORMAL [None]
  - HEADACHE [None]
  - MEMORY IMPAIRMENT [None]
  - MYALGIA [None]
  - OEDEMA PERIPHERAL [None]
  - PAIN [None]
